FAERS Safety Report 12398669 (Version 2)
Quarter: 2016Q2

REPORT INFORMATION
  Report Type: Report from Study
  Country: US (occurrence: US)
  Receive Date: 20160524
  Receipt Date: 20160614
  Transmission Date: 20160815
  Serious: Yes (Other)
  Sender: FDA-Public Use
  Company Number: US-ACTELION-A-US2016-134299

PATIENT
  Age: 32 Year
  Sex: Male

DRUGS (3)
  1. OPSUMIT [Suspect]
     Active Substance: MACITENTAN
     Indication: PULMONARY ARTERIAL HYPERTENSION
     Dosage: 10 MG, QD
     Route: 048
     Dates: start: 20151020
  2. ADCIRCA [Concomitant]
     Active Substance: TADALAFIL
  3. TYVASO [Concomitant]
     Active Substance: TREPROSTINIL

REACTIONS (8)
  - Weight decreased [Unknown]
  - Cough [Unknown]
  - Decreased appetite [Unknown]
  - Dizziness [Unknown]
  - Dyspnoea exertional [Unknown]
  - Night sweats [Unknown]
  - Chest pain [Unknown]
  - Dry mouth [Unknown]
